FAERS Safety Report 4561239-8 (Version None)
Quarter: 2005Q1

REPORT INFORMATION
  Report Type: 
  Country: None (occurrence: None)
  Receive Date: 20050121
  Receipt Date: 20050107
  Transmission Date: 20050727
  Serious: Yes (Congenital Anomaly)
  Sender: FDA-Public Use
  Company Number: 2005-BP-00255RO

PATIENT
  Sex: 0

DRUGS (4)
  1. AZATHIOPRINE [Suspect]
     Dosage: PATERNAL EXPOSURE
  2. FUROSEMIDE [Concomitant]
  3. METOPROLOL TARTRATE [Concomitant]
  4. PREDNISONE [Concomitant]

REACTIONS (2)
  - TRANSMISSION OF DRUG VIA SEMEN [None]
  - VENTRICULAR SEPTAL DEFECT [None]
